FAERS Safety Report 9518591 (Version 2)
Quarter: 2013Q3

REPORT INFORMATION
  Report Type: Report from Study
  Country: AR (occurrence: AR)
  Receive Date: 20130912
  Receipt Date: 20130912
  Transmission Date: 20140515
  Serious: Yes (Other)
  Sender: FDA-Public Use
  Company Number: PHHY2013AR098195

PATIENT
  Sex: Female

DRUGS (2)
  1. DIOVAN [Suspect]
     Indication: BLOOD PRESSURE DIASTOLIC INCREASED
     Dosage: 1 DF (80MG), A DAY
     Route: 048
     Dates: start: 2010
  2. PARACETAMOL [Concomitant]
     Dosage: UNK UKN, UNK

REACTIONS (9)
  - Osteoarthritis [Unknown]
  - Joint stiffness [Unknown]
  - Arthralgia [Not Recovered/Not Resolved]
  - Abdominal hernia [Not Recovered/Not Resolved]
  - Discomfort [Unknown]
  - Pain in extremity [Not Recovered/Not Resolved]
  - Aphonia [Not Recovered/Not Resolved]
  - Chronic sinusitis [Not Recovered/Not Resolved]
  - Cough [Not Recovered/Not Resolved]
